FAERS Safety Report 8421468 (Version 23)
Quarter: 2020Q2

REPORT INFORMATION
  Report Type: Report from Study
  Country: CA (occurrence: CA)
  Receive Date: 20120222
  Receipt Date: 20200515
  Transmission Date: 20200714
  Serious: Yes (Hospitalization, Other)
  Sender: FDA-Public Use
  Company Number: PHHY2010CA21353

PATIENT
  Age: 66 Year
  Sex: Female

DRUGS (3)
  1. TIAZAC [Concomitant]
     Active Substance: DILTIAZEM HYDROCHLORIDE
     Indication: PRODUCT USED FOR UNKNOWN INDICATION
     Route: 065
  2. SANDOSTATIN LAR DEPOT [Suspect]
     Active Substance: OCTREOTIDE ACETATE
     Indication: ACROMEGALY
     Dosage: 20 MG, QMO (EVERY 4 WEEKS)
     Route: 030
     Dates: start: 20100305
  3. MICARDIS PLUS [Concomitant]
     Active Substance: HYDROCHLOROTHIAZIDE\TELMISARTAN
     Indication: PRODUCT USED FOR UNKNOWN INDICATION
     Route: 065

REACTIONS (20)
  - Cholelithiasis [Unknown]
  - Pain in extremity [Recovering/Resolving]
  - Inflammation [Recovering/Resolving]
  - Osteoarthritis [Unknown]
  - Blood test abnormal [Unknown]
  - Mobility decreased [Unknown]
  - Cough [Not Recovered/Not Resolved]
  - Alopecia [Unknown]
  - Hip fracture [Recovering/Resolving]
  - Pain [Unknown]
  - Arthralgia [Not Recovered/Not Resolved]
  - Nasal congestion [Recovering/Resolving]
  - Headache [Recovering/Resolving]
  - Arthritis [Unknown]
  - Diarrhoea [Recovering/Resolving]
  - Contusion [Unknown]
  - Blood pressure increased [Unknown]
  - Influenza [Recovering/Resolving]
  - Localised infection [Recovering/Resolving]
  - Erythema [Recovering/Resolving]

NARRATIVE: CASE EVENT DATE: 201007
